FAERS Safety Report 17954320 (Version 2)
Quarter: 2020Q4

REPORT INFORMATION
  Report Type: Spontaneous
  Country: US (occurrence: US)
  Receive Date: 20200629
  Receipt Date: 20201124
  Transmission Date: 20210113
  Serious: Yes (Death)
  Sender: FDA-Public Use
  Company Number: US-ROCHE-2632223

PATIENT
  Age: 38 Year
  Sex: Male
  Weight: 99.9 kg

DRUGS (14)
  1. ALECENSA [Suspect]
     Active Substance: ALECTINIB HYDROCHLORIDE
     Indication: BRAIN NEOPLASM MALIGNANT
  2. ALBUTEROL HFA [Concomitant]
     Active Substance: ALBUTEROL SULFATE
  3. MARINOL [Concomitant]
     Active Substance: DRONABINOL
     Dosage: AS NEEDED
     Route: 048
     Dates: end: 202006
  4. SCOPOLAMINE [Concomitant]
     Active Substance: SCOPOLAMINE
  5. ALECENSA [Suspect]
     Active Substance: ALECTINIB HYDROCHLORIDE
     Indication: LUNG NEOPLASM MALIGNANT
     Route: 048
     Dates: start: 20190531, end: 20200611
  6. ALECENSA [Suspect]
     Active Substance: ALECTINIB HYDROCHLORIDE
     Indication: LYMPHADENOPATHY
  7. SENNOSIDES. [Concomitant]
     Active Substance: SENNOSIDES
     Dosage: PRN
  8. ELIQUIS [Concomitant]
     Active Substance: APIXABAN
  9. ALECENSA [Suspect]
     Active Substance: ALECTINIB HYDROCHLORIDE
     Indication: MALIGNANT PLEURAL EFFUSION
  10. COLACE [Concomitant]
     Active Substance: DOCUSATE SODIUM
     Dosage: PRN
  11. ALECENSA [Suspect]
     Active Substance: ALECTINIB HYDROCHLORIDE
     Indication: PERICARDIAL EFFUSION
  12. ZOFRAN [Concomitant]
     Active Substance: ONDANSETRON HYDROCHLORIDE
  13. LORAZEPAM. [Concomitant]
     Active Substance: LORAZEPAM
     Dosage: EVERY HS PRN
  14. MS CONTIN [Concomitant]
     Active Substance: MORPHINE SULFATE
     Indication: PAIN
     Route: 048
     Dates: start: 202006

REACTIONS (1)
  - Death [Fatal]

NARRATIVE: CASE EVENT DATE: 20200615
